FAERS Safety Report 23921345 (Version 1)
Quarter: 2024Q2

REPORT INFORMATION
  Report Type: Report from Study
  Country: US (occurrence: US)
  Receive Date: 20240530
  Receipt Date: 20240530
  Transmission Date: 20240715
  Serious: Yes (Death, Hospitalization, Other)
  Sender: FDA-Public Use
  Company Number: US-ABBVIE-5779154

PATIENT
  Age: 88 Year
  Sex: Male
  Weight: 70.306 kg

DRUGS (1)
  1. LUPRON [Suspect]
     Active Substance: LEUPROLIDE ACETATE
     Indication: Prostate cancer
     Dosage: FORM STRENGTH: 45 MILLIGRAM
     Route: 030
     Dates: start: 2022

REACTIONS (3)
  - Cardiac arrest [Fatal]
  - Fall [Recovering/Resolving]
  - Arteriosclerosis [Fatal]

NARRATIVE: CASE EVENT DATE: 20240326
